FAERS Safety Report 10075621 (Version 1)
Quarter: 2014Q2

REPORT INFORMATION
  Report Type: Spontaneous
  Country: US (occurrence: US)
  Receive Date: 20140414
  Receipt Date: 20140414
  Transmission Date: 20141212
  Serious: No
  Sender: FDA-Public Use
  Company Number: US-B.I. PHARMACEUTICALS,INC./RIDGEFIELD-2014-BI-14845BP

PATIENT
  Age: 67 Year
  Sex: Female
  Weight: 91 kg

DRUGS (7)
  1. PRADAXA [Suspect]
     Indication: ATRIAL FLUTTER
     Dosage: 300 MG
     Route: 048
     Dates: start: 201109, end: 201110
  2. PRADAXA [Suspect]
     Dosage: 300 MG
     Route: 048
     Dates: start: 201402
  3. METFORMIN [Concomitant]
     Indication: TYPE 2 DIABETES MELLITUS
     Dosage: 1000 MG
     Route: 048
  4. LISINOPRIL [Concomitant]
     Indication: HYPERTENSION
     Dosage: 30 MG
     Route: 048
  5. PRAVASTATIN [Concomitant]
     Indication: BLOOD CHOLESTEROL INCREASED
     Dosage: 40 MG
     Route: 048
  6. AMLODIPINE [Concomitant]
     Indication: HYPERTENSION
     Dosage: 5 MG
     Route: 048
  7. METOPROLOL [Concomitant]
     Indication: HYPERTENSION
     Dosage: 50 MG
     Route: 048

REACTIONS (3)
  - Atrial flutter [Not Recovered/Not Resolved]
  - Off label use [Unknown]
  - Off label use [Unknown]
